FAERS Safety Report 5145315-7 (Version None)
Quarter: 2006Q4

REPORT INFORMATION
  Report Type: 
  Country: None (occurrence: None)
  Receive Date: 20061107
  Receipt Date: 20061027
  Transmission Date: 20070319
  Serious: Yes (Disabling, Other)
  Sender: FDA-Public Use
  Company Number: US-ELI_LILLY_AND_COMPANY-US200611000220

PATIENT
  Age: 64 Year
  Sex: Male

DRUGS (5)
  1. CIALIS [Suspect]
     Indication: ERECTILE DYSFUNCTION
  2. LEVITRA                                 /GFR/ [Concomitant]
     Indication: ERECTILE DYSFUNCTION
     Dosage: UNK, UNK
     Route: 048
     Dates: start: 20041001
  3. TAMSULOSIN HCL [Concomitant]
  4. ACETYLSALICYLIC ACID SRT [Concomitant]
     Dosage: 81 MG, UNK
  5. VIAGRA                                  /SWE/ [Concomitant]
     Dates: start: 20041001

REACTIONS (1)
  - DEAFNESS NEUROSENSORY [None]
